FAERS Safety Report 8731644 (Version 2)
Quarter: 2012Q4

REPORT INFORMATION
  Report Type: 
  Country: US (occurrence: US)
  Receive Date: 20120820
  Receipt Date: 20120907
  Transmission Date: 20130627
  Serious: Yes (Other)
  Sender: FDA-Public Use
  Company Number: US-ASTELLAS-2012US006940

PATIENT

DRUGS (9)
  1. PROTOPIC [Suspect]
     Indication: DERMATITIS ATOPIC
     Dosage: 0.03 %, bid
     Route: 061
     Dates: start: 201104
  2. PROTOPIC [Suspect]
     Dosage: 0.1 %, bid
     Route: 061
     Dates: start: 201104
  3. ENBREL [Concomitant]
     Indication: SARCOIDOSIS
     Dosage: 1 DF, Weekly
     Route: 058
     Dates: start: 201204
  4. METHOTREXATE [Concomitant]
     Indication: SARCOIDOSIS
     Dosage: 2.5 mg, Weekly
     Route: 048
     Dates: start: 201108
  5. OMEPRAZOLE [Concomitant]
     Indication: GASTROOESOPHAGEAL REFLUX DISEASE
     Dosage: 80 mg, bid
     Route: 048
  6. SINGULAIR [Concomitant]
     Indication: HYPERSENSITIVITY
     Dosage: 10 mg, UID/QD
     Route: 048
  7. FOLIC ACID [Concomitant]
     Indication: SARCOIDOSIS
     Dosage: 1 mg, UID/QD
     Route: 048
     Dates: start: 201108
  8. PREDNISONE [Concomitant]
     Indication: PRODUCT USED FOR UNKNOWN INDICATION
     Dosage: 7.5 mg, UID/QD
     Route: 048
  9. HYDROXYCHLOR [Concomitant]
     Indication: HYPERTENSION
     Dosage: 200 mg, bid
     Route: 048

REACTIONS (3)
  - Overdose [Unknown]
  - Uterine leiomyoma [Unknown]
  - Gastric disorder [Unknown]
